FAERS Safety Report 14308196 (Version 9)
Quarter: 2020Q3

REPORT INFORMATION
  Report Type: Report from Study
  Country: DE (occurrence: DE)
  Receive Date: 20171220
  Receipt Date: 20200910
  Transmission Date: 20201102
  Serious: Yes (Other)
  Sender: FDA-Public Use
  Company Number: PHHY2017DE095752

PATIENT
  Sex: Female
  Weight: 80 kg

DRUGS (17)
  1. VOTRIENT [Suspect]
     Active Substance: PAZOPANIB HYDROCHLORIDE
     Dosage: 400 MG, QD
     Route: 048
     Dates: start: 20170912, end: 20170918
  2. HCT [Concomitant]
     Active Substance: HYDROCHLOROTHIAZIDE
     Dosage: 25 MG, QD (DAILY)
     Route: 048
     Dates: start: 20171102
  3. VOTRIENT [Suspect]
     Active Substance: PAZOPANIB HYDROCHLORIDE
     Dosage: UNK
     Route: 048
     Dates: start: 20180116, end: 20180116
  4. ASTONIN [Concomitant]
     Indication: PROPHYLAXIS
     Dosage: 0.1 MG, QD (DAILY)
     Route: 048
     Dates: start: 20170204
  5. VOTRIENT [Suspect]
     Active Substance: PAZOPANIB HYDROCHLORIDE
     Indication: METASTATIC RENAL CELL CARCINOMA
     Dosage: 800 MG, QD
     Route: 048
     Dates: start: 20170504, end: 20170523
  6. VOTRIENT [Suspect]
     Active Substance: PAZOPANIB HYDROCHLORIDE
     Dosage: 400 MG, QD
     Route: 048
     Dates: start: 20170705, end: 20170911
  7. HYDROCORTICONE [Concomitant]
     Active Substance: HYDROCORTISONE
     Indication: PROPHYLAXIS
     Dosage: 10 MG, QD (DAILY)
     Route: 048
     Dates: start: 20170204
  8. CANDESARTAN. [Concomitant]
     Active Substance: CANDESARTAN
     Indication: HYPERTENSION
     Dosage: 8 MG, PRN (AS NEEDED)
     Route: 048
     Dates: start: 20171102, end: 20180305
  9. EBRANTIL [Concomitant]
     Active Substance: URAPIDIL
     Indication: HYPERTENSION
     Dosage: 30 MG, PRN (AS NEEDED)
     Route: 048
     Dates: start: 20171102
  10. KALINOR RETARD [Concomitant]
     Active Substance: POTASSIUM CHLORIDE
     Indication: PROPHYLAXIS
     Dosage: 600 MG, QD (DAILY)
     Route: 048
     Dates: start: 20180116
  11. VOTRIENT [Suspect]
     Active Substance: PAZOPANIB HYDROCHLORIDE
     Dosage: 800 MG, QD
     Route: 048
     Dates: start: 20170524, end: 20170619
  12. VOTRIENT [Suspect]
     Active Substance: PAZOPANIB HYDROCHLORIDE
     Dosage: 400 MG, QD
     Route: 048
     Dates: start: 20170919, end: 20171025
  13. HCT [Concomitant]
     Active Substance: HYDROCHLOROTHIAZIDE
     Indication: HYPERTENSION
     Dosage: 12.5 MG, QD (DAILY)
     Route: 048
     Dates: start: 20170815, end: 20171102
  14. HYDROCORTISON GALEN [Concomitant]
     Indication: PROPHYLAXIS
     Dosage: 15 MG, QD (DAILY)
     Route: 048
     Dates: start: 20170204
  15. TOREM [Concomitant]
     Active Substance: TORSEMIDE
     Indication: PROPHYLAXIS
     Dosage: 5 MG, QD (DAILY)
     Route: 048
     Dates: start: 20180301
  16. VOTRIENT [Suspect]
     Active Substance: PAZOPANIB HYDROCHLORIDE
     Dosage: 800 MG, QD
     Route: 048
     Dates: start: 20170620, end: 20170627
  17. VOTRIENT [Suspect]
     Active Substance: PAZOPANIB HYDROCHLORIDE
     Dosage: 400 MG, QD
     Route: 048
     Dates: start: 20171102, end: 20180115

REACTIONS (16)
  - Erythema [Not Recovered/Not Resolved]
  - Essential hypertension [Recovered/Resolved]
  - Acute polyneuropathy [Recovered/Resolved]
  - Hot flush [Recovered/Resolved]
  - Hypertension [Recovered/Resolved]
  - Vomiting [Recovered/Resolved]
  - Blood bilirubin increased [Recovered/Resolved]
  - Abdominal pain [Recovered/Resolved]
  - Fatigue [Recovered/Resolved]
  - Diarrhoea [Recovered/Resolved]
  - Diarrhoea [Recovered/Resolved]
  - Blood lactate dehydrogenase increased [Recovered/Resolved]
  - Stomatitis [Recovered/Resolved]
  - Blood thyroid stimulating hormone increased [Recovered/Resolved]
  - Nausea [Recovered/Resolved]
  - Blood lactate dehydrogenase increased [Not Recovered/Not Resolved]

NARRATIVE: CASE EVENT DATE: 20170508
